FAERS Safety Report 16920754 (Version 1)
Quarter: 2019Q4

REPORT INFORMATION
  Report Type: Report from Study
  Country: AU (occurrence: AU)
  Receive Date: 20191015
  Receipt Date: 20191015
  Transmission Date: 20200122
  Serious: Yes (Hospitalization, Other)
  Sender: FDA-Public Use
  Company Number: AU-GLAXOSMITHKLINE-AU2019APC185527

PATIENT

DRUGS (9)
  1. CORTISONE (NOS) [Concomitant]
     Dosage: 25 MG, UNK
  2. PREDNISOLONE. [Concomitant]
     Active Substance: PREDNISOLONE
     Indication: PRODUCT USED FOR UNKNOWN INDICATION
     Dosage: UNK
  3. CORTISONE (NOS) [Concomitant]
     Indication: PRODUCT USED FOR UNKNOWN INDICATION
     Dosage: 50 MG, UNK
  4. CORTISONE (NOS) [Concomitant]
     Dosage: 12.5 MG, UNK
  5. MEPOLIZUMAB [Suspect]
     Active Substance: MEPOLIZUMAB
     Indication: ASTHMA
     Dosage: 100 MG, UNK
     Route: 042
     Dates: start: 20180623
  6. CORTISONE (NOS) [Concomitant]
     Dosage: 6 MG, UNK
  7. CORTISONE (NOS) [Concomitant]
     Dosage: 3 MG, QD
  8. MEPOLIZUMAB [Suspect]
     Active Substance: MEPOLIZUMAB
     Dosage: 100 MG, UNK
     Route: 042
     Dates: start: 20190910
  9. VENTOLIN [Concomitant]
     Active Substance: ALBUTEROL SULFATE
     Indication: PRODUCT USED FOR UNKNOWN INDICATION
     Dosage: UNK

REACTIONS (3)
  - Prostatic specific antigen increased [Unknown]
  - Asthma [Unknown]
  - Prostate cancer [Unknown]
